FAERS Safety Report 13268237 (Version 2)
Quarter: 2017Q2

REPORT INFORMATION
  Report Type: Spontaneous
  Country: JP (occurrence: JP)
  Receive Date: 20170224
  Receipt Date: 20170609
  Transmission Date: 20170830
  Serious: Yes (Other)
  Sender: FDA-Public Use
  Company Number: US-ASTRAZENECA-2017SE20252

PATIENT
  Age: 44 Year
  Sex: Male
  Weight: 89.1 kg

DRUGS (21)
  1. LIMAS [Interacting]
     Active Substance: LITHIUM CARBONATE
     Indication: BIPOLAR DISORDER
     Dosage: 400 MG, TID
     Route: 048
     Dates: start: 201301, end: 20140125
  2. SEROQUEL [Concomitant]
     Active Substance: QUETIAPINE FUMARATE
     Indication: BIPOLAR DISORDER
     Dosage: 400 MG, UNK400.0MG UNKNOWN
     Route: 048
  3. LONASEN [Concomitant]
     Active Substance: BLONANSERIN
     Indication: BIPOLAR DISORDER
     Dosage: 4 MG, QD
     Route: 048
     Dates: end: 20140427
  4. LIMAS [Interacting]
     Active Substance: LITHIUM CARBONATE
     Indication: BIPOLAR DISORDER
     Dosage: 1000 MG, UNK
     Route: 048
     Dates: end: 201301
  5. DEPAKENE [Concomitant]
     Active Substance: VALPROIC ACID
     Indication: BIPOLAR DISORDER
     Dosage: 1000 MG, UNK1000.0MG UNKNOWN
     Route: 048
     Dates: start: 20011023
  6. HERBAL NOS [Concomitant]
     Active Substance: HERBALS
     Indication: IRRITABILITY
     Dosage: 2.5 G, TID
     Route: 048
     Dates: start: 20130208, end: 20140429
  7. SEROQUEL [Concomitant]
     Active Substance: QUETIAPINE FUMARATE
     Indication: BIPOLAR DISORDER
     Dosage: 175 MG, QID
     Route: 048
     Dates: start: 20080509
  8. SOLANAX [Concomitant]
     Active Substance: ALPRAZOLAM
     Indication: ANXIETY
     Dosage: 0.4 MG, TID
     Route: 048
  9. BENZALIN                           /00036201/ [Concomitant]
     Active Substance: NITRAZEPAM
     Indication: INSOMNIA
     Dosage: 5 MG, QD
     Route: 048
     Dates: start: 20011016
  10. LENDORMIN [Concomitant]
     Active Substance: BROTIZOLAM
     Indication: INSOMNIA
     Dosage: 0.5 MG, QD
     Route: 048
     Dates: start: 20061013
  11. LIPIDIL [Concomitant]
     Active Substance: FENOFIBRATE
     Indication: HYPERLIPIDAEMIA
     Dosage: 80 MG, QD
     Route: 048
     Dates: start: 20080526, end: 20140427
  12. ECARD COMBINATION TABLETS HD [Suspect]
     Active Substance: CANDESARTAN CILEXETIL\HYDROCHLOROTHIAZIDE
     Indication: HYPERTENSION
     Dosage: 1 DF DAILY
     Route: 048
     Dates: start: 20100514, end: 201401
  13. SOLANAX [Concomitant]
     Active Substance: ALPRAZOLAM
     Indication: ANXIETY
     Dosage: 0.8 MG, UNK0.8MG UNKNOWN
     Route: 048
     Dates: start: 20140210, end: 20140216
  14. SOLANAX [Concomitant]
     Active Substance: ALPRAZOLAM
     Indication: ANXIETY
     Dosage: 0.4 MG, UNK0.4MG UNKNOWN
     Route: 048
     Dates: start: 20140217, end: 20140427
  15. LONASEN [Concomitant]
     Active Substance: BLONANSERIN
     Indication: BIPOLAR DISORDER
     Dosage: 12 MG, QD
     Route: 048
     Dates: start: 20140117
  16. SEROQUEL [Concomitant]
     Active Substance: QUETIAPINE FUMARATE
     Indication: BIPOLAR DISORDER
     Dosage: 300 MG, UNK300.0MG UNKNOWN
     Route: 048
     Dates: start: 20140210
  17. ARTANE [Concomitant]
     Active Substance: TRIHEXYPHENIDYL HYDROCHLORIDE
     Indication: PROPHYLAXIS
     Dosage: 1 MG, QID
     Route: 048
     Dates: start: 20101112
  18. BENZALIN                           /00036201/ [Concomitant]
     Active Substance: NITRAZEPAM
     Indication: INSOMNIA
     Dosage: 5 MG, QD
     Route: 048
     Dates: end: 20140130
  19. TRAZODONE [Concomitant]
     Active Substance: TRAZODONE HYDROCHLORIDE
     Indication: INSOMNIA
     Dosage: 700 MG, QD
     Route: 048
     Dates: start: 20050907
  20. LENDORMIN [Concomitant]
     Active Substance: BROTIZOLAM
     Indication: INSOMNIA
     Dosage: 0.5 MG, QD
     Route: 048
  21. RISPERIDONE. [Concomitant]
     Active Substance: RISPERIDONE
     Indication: BIPOLAR DISORDER
     Dosage: 3 MG, UNK3.0MG UNKNOWN
     Route: 048
     Dates: end: 20140116

REACTIONS (4)
  - Toxicity to various agents [Recovered/Resolved]
  - Drug interaction [Recovered/Resolved]
  - Acute kidney injury [Recovered/Resolved]
  - Blood pressure decreased [Unknown]

NARRATIVE: CASE EVENT DATE: 201401
